FAERS Safety Report 11911696 (Version 1)
Quarter: 2016Q1

REPORT INFORMATION
  Report Type: Spontaneous
  Country: US (occurrence: US)
  Receive Date: 20160112
  Receipt Date: 20160112
  Transmission Date: 20160526
  Serious: Yes (Other)
  Sender: FDA-Public Use
  Company Number: US-BRISTOL-MYERS SQUIBB COMPANY-BMS-2016-000108

PATIENT
  Sex: Female

DRUGS (2)
  1. ELIQUIS [Suspect]
     Active Substance: APIXABAN
     Indication: PULMONARY EMBOLISM
     Dosage: 5 MG, BID
     Route: 065
     Dates: start: 201504
  2. PLAQUENIL [Concomitant]
     Active Substance: HYDROXYCHLOROQUINE SULFATE
     Indication: BLOOD DISORDER
     Route: 005

REACTIONS (7)
  - Activities of daily living impaired [Unknown]
  - Abasia [Unknown]
  - Dyspnoea [Unknown]
  - Rash [Unknown]
  - Obesity [Unknown]
  - Fibromyalgia [Unknown]
  - Asthenia [Unknown]
